FAERS Safety Report 13666977 (Version 1)
Quarter: 2017Q2

REPORT INFORMATION
  Report Type: Spontaneous
  Country: US (occurrence: US)
  Receive Date: 20170619
  Receipt Date: 20170619
  Transmission Date: 20170830
  Serious: No
  Sender: FDA-Public Use
  Company Number: US-ROCHE-1321048

PATIENT
  Sex: Female

DRUGS (9)
  1. LEVOTHYROXINE. [Concomitant]
     Active Substance: LEVOTHYROXINE
  2. XELODA [Suspect]
     Active Substance: CAPECITABINE
     Indication: BREAST CANCER
     Dosage: TWO 500MG TABLETS, TWICE A DAY.
     Route: 065
     Dates: start: 20130621
  3. SIMVASTATIN. [Concomitant]
     Active Substance: SIMVASTATIN
  4. LYSINE [Concomitant]
     Active Substance: LYSINE
  5. CELEXA [Concomitant]
     Active Substance: CITALOPRAM HYDROBROMIDE
  6. NEURONTIN [Concomitant]
     Active Substance: GABAPENTIN
  7. XELODA [Suspect]
     Active Substance: CAPECITABINE
     Indication: METASTASES TO LUNG
  8. PEPCID [Concomitant]
     Active Substance: FAMOTIDINE
  9. COREG [Concomitant]
     Active Substance: CARVEDILOL
     Route: 065

REACTIONS (1)
  - Diarrhoea [Unknown]
